FAERS Safety Report 8023706-4 (Version None)
Quarter: 2012Q1

REPORT INFORMATION
  Report Type: 
  Country: None (occurrence: None)
  Receive Date: 20120105
  Receipt Date: 20111227
  Transmission Date: 20120608
  Serious: Yes (Other)
  Sender: FDA-Public Use
  Company Number: US-BAYER-2011-051086

PATIENT
  Age: 39 Year
  Sex: Female
  Weight: 122.45 kg

DRUGS (4)
  1. MULTI-VITAMIN [Concomitant]
  2. YASMIN [Suspect]
     Dosage: UNK
     Route: 048
     Dates: start: 20070107, end: 20080408
  3. YASMIN [Suspect]
     Indication: CONTRACEPTION
     Dosage: UNK
     Route: 048
     Dates: start: 20040101, end: 20040101
  4. DROSPIRENONE AND ETHINYL ESTRADIOL [Suspect]
     Indication: CONTRACEPTION
     Dosage: UNK
     Route: 048
     Dates: start: 20080408, end: 20100103

REACTIONS (5)
  - OEDEMA PERIPHERAL [None]
  - MENTAL DISORDER [None]
  - PAIN [None]
  - DEEP VEIN THROMBOSIS [None]
  - INJURY [None]
